FAERS Safety Report 8081169-7 (Version None)
Quarter: 2012Q1

REPORT INFORMATION
  Report Type: 
  Country: None (occurrence: None)
  Receive Date: 20120130
  Receipt Date: 20111027
  Transmission Date: 20120608
  Serious: Yes (Death)
  Sender: FDA-Public Use
  Company Number: JP-GLAXOSMITHKLINE-B0759980A

PATIENT
  Sex: Female

DRUGS (3)
  1. XELODA [Concomitant]
     Dosage: 2000MGM2 PER DAY
     Route: 048
     Dates: start: 20110911
  2. TYKERB [Suspect]
     Indication: BREAST CANCER
     Dosage: 1250MG PER DAY
     Route: 048
     Dates: start: 20110911
  3. DEPAKENE [Concomitant]
     Route: 048

REACTIONS (1)
  - DIARRHOEA [None]
